FAERS Safety Report 5475911-9 (Version None)
Quarter: 2007Q4

REPORT INFORMATION
  Report Type: 
  Country: None (occurrence: None)
  Receive Date: 20071003
  Receipt Date: 20070928
  Transmission Date: 20080405
  Serious: Yes (Other)
  Sender: FDA-Public Use
  Company Number: US-ASTRAZENECA-2007UW14157

PATIENT
  Age: 69 Year
  Sex: Female
  Weight: 63 kg

DRUGS (6)
  1. ATACAND [Suspect]
     Indication: HYPERTENSION
     Route: 048
     Dates: start: 19980101
  2. CEPHALEXIN [Interacting]
  3. TOPROL-XL [Concomitant]
     Route: 048
  4. FLUTICASONE PROPIONATE [Concomitant]
  5. PREVACID [Concomitant]
  6. SUCRALFATE [Concomitant]

REACTIONS (3)
  - HYPERSENSITIVITY [None]
  - RASH [None]
  - VOMITING [None]
